FAERS Safety Report 13601010 (Version 1)
Quarter: 2017Q2

REPORT INFORMATION
  Report Type: Spontaneous
  Country: US (occurrence: US)
  Receive Date: 20170601
  Receipt Date: 20170601
  Transmission Date: 20170830
  Serious: Yes (Other)
  Sender: FDA-Public Use
  Company Number: None

PATIENT
  Age: 65 Year
  Sex: Female
  Weight: 72 kg

DRUGS (6)
  1. CIPRO [Suspect]
     Active Substance: CIPROFLOXACIN HYDROCHLORIDE
     Indication: DIVERTICULITIS
     Route: 048
     Dates: start: 20161125, end: 20161130
  2. CIPRO [Suspect]
     Active Substance: CIPROFLOXACIN HYDROCHLORIDE
     Indication: INTESTINAL MASS
     Route: 048
     Dates: start: 20161125, end: 20161130
  3. COQ10 [Concomitant]
     Active Substance: UBIDECARENONE
  4. SIMVASTATIN. [Concomitant]
     Active Substance: SIMVASTATIN
  5. KRILL OIL [Concomitant]
     Active Substance: DIETARY SUPPLEMENT
  6. MULTI-VITAMIN [Concomitant]
     Active Substance: .ALPHA.-TOCOPHEROL ACETATE, DL-\ASCORBIC ACID\CYANOCOBALAMIN\FLUORIDE ION\FOLIC ACID\NIACIN\PYRIDOXINE\RIBOFLAVIN\THIAMINE\VITAMIN A\VITAMIN D

REACTIONS (3)
  - Rash [None]
  - Pruritus [None]
  - Dyspnoea [None]

NARRATIVE: CASE EVENT DATE: 20161130
